FAERS Safety Report 4334898-2 (Version None)
Quarter: 2004Q2

REPORT INFORMATION
  Report Type: 
  Country: None (occurrence: None)
  Receive Date: 20040408
  Receipt Date: 20040129
  Transmission Date: 20050107
  Serious: Yes (Hospitalization, Other)
  Sender: FDA-Public Use
  Company Number: PHNU2004DE00727

PATIENT
  Age: 34 Year
  Sex: Male

DRUGS (31)
  1. CYCLOSPORINE [Suspect]
     Indication: LUNG TRANSPLANT
     Dosage: 150-175MG/DAY
     Dates: start: 19990118
  2. DECORTIN [Concomitant]
     Dosage: 12.5MG/DAY
     Dates: start: 19990118, end: 20031113
  3. DECORTIN [Concomitant]
     Dosage: 10 MG, QD
     Dates: start: 20031114
  4. XANEF [Concomitant]
     Indication: HYPERTENSION
     Dosage: 5 MG, BID
     Dates: start: 19990118, end: 20031113
  5. XANEF [Concomitant]
     Dosage: 5 MG, QD
     Dates: start: 20031114
  6. CALCIUM [Concomitant]
     Dates: start: 19990118, end: 20031113
  7. CALCIUM [Concomitant]
     Dosage: 500 MG, QD
     Dates: start: 20031114
  8. MAGNESIUM [Concomitant]
     Dosage: 1 DL, BID
     Route: 048
     Dates: start: 20031114
  9. VITAMIN D [Concomitant]
  10. LASIX [Concomitant]
  11. CELLCEPT [Concomitant]
     Dates: start: 19990118
  12. SULFAMETHOXAZOLE + TRIMETHOPRIM [Concomitant]
     Dosage: 1 DF, BIW
     Dates: start: 19990118
  13. ZOVIRAX [Concomitant]
     Dosage: 1 DF, BID
     Dates: start: 19990118
  14. ZOVIRAX [Concomitant]
     Dates: start: 20031114
  15. ZOVIRAX [Concomitant]
     Dates: start: 20031114
  16. ZOVIRAX [Concomitant]
     Dates: start: 20031114
  17. FUROSEMIDE [Concomitant]
     Dates: start: 19990118, end: 20031113
  18. FUROSEMIDE [Concomitant]
     Dosage: 40 MG, BID
     Dates: start: 20031114
  19. RANITIDINE [Concomitant]
     Dosage: 150 MG, BID
     Dates: start: 19990118
  20. ESIDRIX [Concomitant]
     Dosage: 1 DF, QD
     Dates: start: 19990118
  21. ITRACONAZOLE [Concomitant]
     Dosage: 100 MG, BID
     Dates: start: 19990118
  22. ASPIRIN [Concomitant]
     Dosage: 200 MG, TID
     Dates: start: 19990118
  23. AMPHO-MORONAL [Concomitant]
     Dosage: 4-5/DIE
     Dates: start: 19990118
  24. AMLODIPINE [Concomitant]
     Dosage: 5 MG, QD
     Dates: start: 19990118
  25. ALBUTEROL SULFATE [Concomitant]
     Dates: start: 19990118
  26. PANTOZOL [Concomitant]
     Dosage: 40 MG, BID
     Dates: start: 20031114
  27. VIANI [Concomitant]
     Dosage: 1 DF, QD
     Dates: start: 20031114
  28. ALLOPURINOL [Concomitant]
     Dosage: 100 MG, QD
     Dates: start: 20031114
  29. THIOCTACID [Concomitant]
     Dosage: 600 MG, QD
     Dates: start: 20031114
  30. SANDIMMUNE [Suspect]
     Indication: LUNG TRANSPLANT
     Dosage: 160 MG, BID
     Dates: start: 20031114
  31. SANDIMMUNE [Suspect]
     Indication: LUNG TRANSPLANT
     Dosage: 320MG/DAY

REACTIONS (16)
  - ABDOMINAL DISCOMFORT [None]
  - ABDOMINAL DISTENSION [None]
  - ABDOMINAL PAIN [None]
  - ANGINA PECTORIS [None]
  - BLISTER [None]
  - BLOOD CREATININE INCREASED [None]
  - CARDIAC DISORDER [None]
  - CHEST PAIN [None]
  - ERUCTATION [None]
  - FLATULENCE [None]
  - GASTROINTESTINAL DISORDER [None]
  - HERPES ZOSTER [None]
  - PALPITATIONS [None]
  - RENAL FAILURE [None]
  - SKIN DISORDER [None]
  - URINARY RETENTION [None]
